FAERS Safety Report 8764563 (Version 1)
Quarter: 2012Q4

REPORT INFORMATION
  Report Type: 
  Country: US (occurrence: US)
  Receive Date: 20120831
  Receipt Date: 20120831
  Transmission Date: 20130627
  Serious: No
  Sender: FDA-Public Use
  Company Number: US-ASTRAZENECA-2011SE75111

PATIENT
  Age: 58 Year
  Sex: Male

DRUGS (2)
  1. SYMBICORT PMDI [Suspect]
     Route: 055
  2. PAIN MEDICATION [Concomitant]

REACTIONS (2)
  - Accident [Unknown]
  - Bradyphrenia [Unknown]
